FAERS Safety Report 8176349-6 (Version None)
Quarter: 2012Q1

REPORT INFORMATION
  Report Type: 
  Country: None (occurrence: None)
  Receive Date: 20120301
  Receipt Date: 20120229
  Transmission Date: 20120608
  Serious: No
  Sender: FDA-Public Use
  Company Number: US-B.I. PHARMACEUTICALS,INC./RIDGEFIELD-2012-BP-02046BP

PATIENT
  Sex: Female
  Weight: 72.7 kg

DRUGS (6)
  1. SYNTHROID [Concomitant]
     Indication: HYPOTHYROIDISM
     Dosage: 52 MCG
  2. LIPITOR [Concomitant]
     Indication: DYSLIPIDAEMIA
     Dosage: 60 MG
  3. TOPROL-XL [Concomitant]
     Indication: ATRIAL FIBRILLATION
     Dosage: 50 MG
  4. DIGOXIN [Concomitant]
     Indication: ATRIAL FIBRILLATION
     Dosage: 0.25 MG
     Dates: start: 20040101
  5. ZOLOFT [Concomitant]
     Indication: DEPRESSION
     Dosage: 50 MG
  6. PRADAXA [Suspect]
     Indication: ATRIAL FIBRILLATION
     Dosage: 300 MG
     Route: 048
     Dates: start: 20110701

REACTIONS (2)
  - WEIGHT DECREASED [None]
  - INSOMNIA [None]
